FAERS Safety Report 5806687-0 (Version None)
Quarter: 2008Q3

REPORT INFORMATION
  Report Type: 
  Country: None (occurrence: None)
  Receive Date: 20080710
  Receipt Date: 20080705
  Transmission Date: 20090109
  Serious: Yes (Other)
  Sender: FDA-Public Use
  Company Number: US-AMGEN-QUU286466

PATIENT
  Sex: Male
  Weight: 22.5 kg

DRUGS (2)
  1. ENBREL [Suspect]
     Indication: PSORIATIC ARTHROPATHY
     Route: 064
     Dates: start: 19991019
  2. ENBREL [Suspect]
     Indication: PSORIASIS

REACTIONS (2)
  - ASTHMA [None]
  - BRONCHIAL HYPERREACTIVITY [None]
